FAERS Safety Report 8935708 (Version 1)
Quarter: 2012Q4

REPORT INFORMATION
  Report Type: 
  Country: FR (occurrence: FR)
  Receive Date: 20121130
  Receipt Date: 20121130
  Transmission Date: 20130627
  Serious: Yes (Other)
  Sender: FDA-Public Use
  Company Number: FR-BRISTOL-MYERS SQUIBB COMPANY-17152885

PATIENT
  Age: 53 Year
  Sex: Female

DRUGS (4)
  1. TAXOL INJ [Suspect]
     Indication: BREAST CANCER
     Dosage: Day 1, Day 8 and Day 15
     Route: 042
     Dates: start: 20120430
  2. AVASTIN [Suspect]
     Indication: BREAST CANCER
     Dosage: on Day 1 and Day 15
     Route: 042
     Dates: start: 20120430
  3. RAMIPRIL [Suspect]
     Indication: HYPERTENSION
     Dosage: 15 mg/d orally from 29May2012 to 10Jun2012 then 10 mg/d to 17Sep2012
     Route: 048
     Dates: start: 20120529, end: 20120917
  4. ZOLPIDEM [Suspect]
     Indication: INSOMNIA
     Route: 048
     Dates: start: 20120611

REACTIONS (3)
  - Dermatitis exfoliative [Unknown]
  - Dermatitis acneiform [Unknown]
  - Oedema peripheral [Unknown]
